FAERS Safety Report 4883895-7 (Version None)
Quarter: 2006Q1

REPORT INFORMATION
  Report Type: 
  Country: None (occurrence: None)
  Receive Date: 20060113
  Receipt Date: 20060102
  Transmission Date: 20060701
  Serious: Yes (Hospitalization, Other)
  Sender: FDA-Public Use
  Company Number: HQWYE095920DEC05

PATIENT
  Age: 85 Year
  Sex: Male

DRUGS (7)
  1. VENLAFAXINE HCL [Suspect]
     Indication: DEPRESSION
     Dosage: 75 MG, ORAL
     Route: 048
     Dates: start: 20051028, end: 20051111
  2. ALPRAZOLAM [Concomitant]
  3. ZOLPIDEM TARTRATE [Concomitant]
  4. RABEPRAZOLE SODIUM [Concomitant]
  5. MAGNOSOLV (MAGNESIUM CARBONATE/MAGNESIUM OXIDE) [Concomitant]
  6. LAEVOLAC (LACTULOSE) [Concomitant]
  7. AMLODIPINE [Concomitant]

REACTIONS (1)
  - PARADOXICAL DRUG REACTION [None]
